FAERS Safety Report 16110267 (Version 1)
Quarter: 2019Q1

REPORT INFORMATION
  Report Type: Spontaneous
  Country: US (occurrence: US)
  Receive Date: 20190325
  Receipt Date: 20190325
  Transmission Date: 20190418
  Serious: Yes (Hospitalization, Other)
  Sender: FDA-Public Use
  Company Number: US-AUROBINDO-AUR-APL-2019-014872

PATIENT

DRUGS (2)
  1. CANNABIS SATIVA [Concomitant]
     Active Substance: CANNABIS SATIVA SUBSP. SATIVA FLOWERING TOP
     Indication: PRODUCT USED FOR UNKNOWN INDICATION
     Dosage: UNK
     Route: 064
  2. METHADONE [Suspect]
     Active Substance: METHADONE HYDROCHLORIDE
     Indication: PRODUCT USED FOR UNKNOWN INDICATION
     Dosage: 65 MILLIGRAM, DAILY
     Route: 064

REACTIONS (23)
  - Vomiting [Recovering/Resolving]
  - Diarrhoea [Recovering/Resolving]
  - Poor sucking reflex [Recovering/Resolving]
  - Grunting [Recovering/Resolving]
  - Low set ears [Unknown]
  - Brain scan abnormal [Unknown]
  - Hydrocephalus [Unknown]
  - Neurological symptom [Unknown]
  - Crying [Recovering/Resolving]
  - Dysmorphism [Unknown]
  - Eye disorder [Unknown]
  - Disease progression [Unknown]
  - Irritability [Recovering/Resolving]
  - Respiratory disorder [Recovering/Resolving]
  - Cerebral ventricle dilatation [Unknown]
  - Use of accessory respiratory muscles [Recovering/Resolving]
  - Feeling jittery [Recovering/Resolving]
  - Hypertonia [Recovering/Resolving]
  - Meconium in amniotic fluid [Unknown]
  - Nasal flaring [Recovering/Resolving]
  - Hydranencephaly [Unknown]
  - Drug withdrawal syndrome neonatal [Recovering/Resolving]
  - Foetal exposure during pregnancy [Unknown]
